FAERS Safety Report 4604634-0 (Version None)
Quarter: 2005Q1

REPORT INFORMATION
  Report Type: 
  Country: None (occurrence: None)
  Receive Date: 20050310
  Receipt Date: 20050304
  Transmission Date: 20050727
  Serious: Yes (Hospitalization)
  Sender: FDA-Public Use
  Company Number: NO-MERCK-0503NOR00027

PATIENT
  Age: 96 Year
  Sex: Female

DRUGS (2)
  1. VIOXX [Suspect]
     Route: 048
     Dates: start: 20040304, end: 20041001
  2. VALDECOXIB [Suspect]
     Indication: OSTEOARTHRITIS
     Route: 048
     Dates: start: 20041022, end: 20050221

REACTIONS (1)
  - THROMBOEMBOLIC STROKE [None]
